FAERS Safety Report 8231490-4 (Version None)
Quarter: 2012Q1

REPORT INFORMATION
  Report Type: 
  Country: None (occurrence: None)
  Receive Date: 20120323
  Receipt Date: 20120314
  Transmission Date: 20120608
  Serious: Yes (Hospitalization, Other)
  Sender: FDA-Public Use
  Company Number: PHEH2012US005845

PATIENT
  Sex: Male

DRUGS (3)
  1. CLOZARIL [Suspect]
     Dosage: 25 MG, UNK
     Dates: start: 19920101
  2. CLOZARIL [Suspect]
     Dosage: 400 MG, QD
  3. CLOZARIL [Suspect]
     Dosage: 100 MG, QD

REACTIONS (5)
  - CONSTIPATION [None]
  - SUBCUTANEOUS ABSCESS [None]
  - OBSESSIVE-COMPULSIVE DISORDER [None]
  - SALIVARY HYPERSECRETION [None]
  - ANTIPSYCHOTIC DRUG LEVEL INCREASED [None]
